FAERS Safety Report 9459938 (Version 1)
Quarter: 2013Q3

REPORT INFORMATION
  Report Type: Spontaneous
  Country: US (occurrence: US)
  Receive Date: 20130815
  Receipt Date: 20130815
  Transmission Date: 20140515
  Serious: No
  Sender: FDA-Public Use
  Company Number: US-PFIZER INC-2013236263

PATIENT
  Sex: Female

DRUGS (1)
  1. LYRICA [Suspect]
     Dosage: UNK

REACTIONS (6)
  - Disturbance in attention [Unknown]
  - Bladder disorder [Unknown]
  - Neuropathy peripheral [Unknown]
  - Pollakiuria [Unknown]
  - Vision blurred [Unknown]
  - Weight increased [Unknown]
